FAERS Safety Report 13521046 (Version 2)
Quarter: 2017Q2

REPORT INFORMATION
  Report Type: Report from Study
  Country: MX (occurrence: MX)
  Receive Date: 20170508
  Receipt Date: 20170530
  Transmission Date: 20170830
  Serious: Yes (Hospitalization, Other)
  Sender: FDA-Public Use
  Company Number: MX-SUN PHARMACEUTICAL INDUSTRIES LTD-2017RR-139688

PATIENT
  Age: 29 Year
  Sex: Male

DRUGS (1)
  1. ALLOPURINOL. [Suspect]
     Active Substance: ALLOPURINOL
     Indication: HYPERURICAEMIA
     Dosage: 300 MG, DAILY
     Route: 048

REACTIONS (3)
  - Autoimmune haemolytic anaemia [Unknown]
  - Drug reaction with eosinophilia and systemic symptoms [Unknown]
  - Autoimmune hypothyroidism [Recovering/Resolving]
